FAERS Safety Report 5818257-9 (Version None)
Quarter: 2008Q3

REPORT INFORMATION
  Report Type: 
  Country: None (occurrence: None)
  Receive Date: 20080716
  Receipt Date: 20080707
  Transmission Date: 20090109
  Serious: Yes (Other)
  Sender: FDA-Public Use
  Company Number: 2008AP001686

PATIENT
  Sex: Female

DRUGS (3)
  1. PAROXETINE HCL [Suspect]
     Indication: DEPRESSION
     Dosage: 20 MG; UNKNOWN
  2. OMEPRAZOLE [Suspect]
     Indication: DEPRESSION
  3. VALPROIC ACID [Concomitant]

REACTIONS (3)
  - NEUTROPENIA [None]
  - SALIVARY HYPERSECRETION [None]
  - SOMNOLENCE [None]
